FAERS Safety Report 6077781-7 (Version None)
Quarter: 2009Q1

REPORT INFORMATION
  Report Type: 
  Country: None (occurrence: None)
  Receive Date: 20090213
  Receipt Date: 20090204
  Transmission Date: 20090719
  Serious: Yes (Hospitalization)
  Sender: FDA-Public Use
  Company Number: DE-PFIZER INC-2009164566

PATIENT

DRUGS (7)
  1. *ERLOTINIB [Suspect]
     Indication: NON-SMALL CELL LUNG CANCER
     Dosage: 150 MG, 1X/DAY
     Route: 048
     Dates: start: 20081012
  2. BLINDED *PLACEBO [Suspect]
     Indication: NON-SMALL CELL LUNG CANCER
     Dosage: 37.5 MG, 1X/DAY
     Route: 048
     Dates: start: 20081012
  3. BLINDED SUNITINIB MALATE [Suspect]
     Indication: NON-SMALL CELL LUNG CANCER
     Dosage: 37.5 MG, 1X/DAY
     Route: 048
     Dates: start: 20081012
  4. VIDISIC [Concomitant]
     Dosage: UNK
     Dates: start: 20081128
  5. BEPANTHEN CREME [Concomitant]
     Dosage: UNK
     Dates: start: 20081017
  6. UREA [Concomitant]
     Dosage: UNK
     Dates: start: 20081017
  7. FUCICORT [Concomitant]
     Dosage: UNK
     Dates: start: 20081017

REACTIONS (1)
  - PSEUDOMEMBRANOUS COLITIS [None]
